FAERS Safety Report 7521835-2 (Version None)
Quarter: 2011Q2

REPORT INFORMATION
  Report Type: 
  Country: None (occurrence: None)
  Receive Date: 20110524
  Receipt Date: 20110517
  Transmission Date: 20111010
  Serious: Yes (Death, Life-Threatening)
  Sender: FDA-Public Use
  Company Number: 2011SP023104

PATIENT

DRUGS (1)
  1. DULERA TABLET [Suspect]
     Indication: PRODUCT USED FOR UNKNOWN INDICATION

REACTIONS (2)
  - APPARENT LIFE THREATENING EVENT [None]
  - ALCOHOL USE [None]
